FAERS Safety Report 5448196-7 (Version None)
Quarter: 2007Q3

REPORT INFORMATION
  Report Type: 
  Country: None (occurrence: None)
  Receive Date: 20070906
  Receipt Date: 20070821
  Transmission Date: 20080115
  Serious: Yes (Hospitalization)
  Sender: FDA-Public Use
  Company Number: 2007RR-09454

PATIENT
  Age: 70 Year
  Sex: Female

DRUGS (13)
  1. MIDAZOLAM SOLUTIE INJECTABILA 5MG/ML (MIDAZOLAM) UNKNOWN [Suspect]
     Indication: GENERAL ANAESTHESIA
     Dosage: 5 MG
  2. ETOMIDATE [Suspect]
     Indication: GENERAL ANAESTHESIA
     Dosage: 20 MG
  3. SUFENTANIL (SUFENTANIL) [Suspect]
     Indication: GENERAL ANAESTHESIA
     Dosage: 10 UG
  4. ROCURINIUM BROMIDE [Suspect]
     Indication: GENERAL ANAESTHESIA
     Dosage: 30 MG
  5. PROPOFOL [Suspect]
     Indication: GENERAL ANAESTHESIA
     Dosage: 300 MG/H 250 MG/H
  6. METOPROLOL BASICS (METOPROLOL) [Concomitant]
  7. ENALAPRIL BASICS (ENALAPRIL) [Concomitant]
  8. FUROSEMID BASICS (FUROSEMIDE) [Concomitant]
  9. ASPIRIN [Concomitant]
  10. DOBUTAMINE HCL [Concomitant]
  11. NOREPINEPHRINE [Concomitant]
  12. MEPIVACAINE HCL [Concomitant]
  13. ENOXAPARIN SODIUM [Concomitant]

REACTIONS (3)
  - CARDIOVASCULAR INSUFFICIENCY [None]
  - HYPOTENSION [None]
  - RENAL IMPAIRMENT [None]
